FAERS Safety Report 12828165 (Version 3)
Quarter: 2017Q1

REPORT INFORMATION
  Report Type: Report from Study
  Country: US (occurrence: US)
  Receive Date: 20161007
  Receipt Date: 20170306
  Transmission Date: 20170428
  Serious: Yes (Hospitalization, Other)
  Sender: FDA-Public Use
  Company Number: US-BAYER-2016-169023

PATIENT
  Age: 77 Year
  Sex: Male

DRUGS (3)
  1. STIVARGA [Suspect]
     Active Substance: REGORAFENIB
     Indication: COLORECTAL CANCER METASTATIC
     Dosage: DAILY DOSE 120 MG
     Route: 048
     Dates: start: 20160825, end: 20160909
  2. OXYCONTIN [Concomitant]
     Active Substance: OXYCODONE HYDROCHLORIDE
     Indication: CANCER PAIN
     Dosage: 10 MG, BID
     Dates: start: 20160809
  3. APIXABAN [Concomitant]
     Active Substance: APIXABAN

REACTIONS (20)
  - Sepsis [None]
  - Ascites [Not Recovered/Not Resolved]
  - Procedural haemorrhage [None]
  - Pyrexia [None]
  - Splenomegaly [None]
  - Pancreatic disorder [None]
  - Flatulence [None]
  - Epistaxis [None]
  - Adverse drug reaction [None]
  - Dysphonia [Not Recovered/Not Resolved]
  - Oral pain [None]
  - Abdominal pain [Recovered/Resolved]
  - Vomiting [Recovered/Resolved]
  - Intestinal anastomosis complication [Recovered/Resolved]
  - Drug ineffective [None]
  - Oral pain [None]
  - Stomatitis [None]
  - Intestinal anastomosis [None]
  - Hepatocellular carcinoma [None]
  - Thermohyperaesthesia [Not Recovered/Not Resolved]

NARRATIVE: CASE EVENT DATE: 2016
